FAERS Safety Report 9364112 (Version 2)
Quarter: 2013Q3

REPORT INFORMATION
  Report Type: Spontaneous
  Country: US (occurrence: US)
  Receive Date: 20130624
  Receipt Date: 20130703
  Transmission Date: 20140515
  Serious: Yes (Other)
  Sender: FDA-Public Use
  Company Number: US-GILEAD-2013-0077410

PATIENT
  Sex: Female

DRUGS (3)
  1. LETAIRIS [Suspect]
     Indication: CONNECTIVE TISSUE DISORDER
     Dosage: 10 MG, QD
     Dates: start: 20091204
  2. LETAIRIS [Suspect]
     Indication: PULMONARY HYPERTENSION
  3. ADCIRCA [Concomitant]

REACTIONS (1)
  - Systemic lupus erythematosus [Unknown]
